FAERS Safety Report 23638869 (Version 3)
Quarter: 2024Q2

REPORT INFORMATION
  Report Type: Spontaneous
  Country: JP (occurrence: None)
  Receive Date: 20240315
  Receipt Date: 20240610
  Transmission Date: 20240716
  Serious: Yes (Death)
  Sender: FDA-Public Use
  Company Number: 2024A060326

PATIENT
  Sex: Male

DRUGS (20)
  1. KOSELUGO [Suspect]
     Active Substance: SELUMETINIB
     Indication: Neurofibroma
     Route: 048
     Dates: start: 20231214
  2. PREDONINE [Concomitant]
     Active Substance: PREDNISOLONE
     Route: 048
     Dates: start: 20231212, end: 20231230
  3. PREDONINE [Concomitant]
     Active Substance: PREDNISOLONE
     Route: 048
     Dates: start: 20231231
  4. FAMOTIDINE [Concomitant]
     Active Substance: FAMOTIDINE
     Route: 048
     Dates: start: 20231212, end: 20240108
  5. TAPENTADOL HYDROCHLORIDE [Concomitant]
     Active Substance: TAPENTADOL HYDROCHLORIDE
     Route: 048
     Dates: start: 20231220, end: 20231229
  6. TAPENTADOL HYDROCHLORIDE [Concomitant]
     Active Substance: TAPENTADOL HYDROCHLORIDE
     Route: 048
     Dates: start: 20231230, end: 20240111
  7. CALCIUM POLYSTYRENE SULFONATE [Concomitant]
     Active Substance: CALCIUM POLYSTYRENE SULFONATE
     Route: 048
     Dates: start: 20231212, end: 20231226
  8. KAYEXALATE [Concomitant]
     Active Substance: SODIUM POLYSTYRENE SULFONATE
     Route: 048
     Dates: start: 20231226
  9. LOXOPROFEN SODIUM DIHYDRATE [Concomitant]
     Active Substance: LOXOPROFEN SODIUM DIHYDRATE
     Dosage: 60.0MG UNKNOWN
     Route: 048
     Dates: start: 20231212, end: 20231219
  10. MORPHINE HYDROCHLORIDE [Concomitant]
     Active Substance: MORPHINE HYDROCHLORIDE
     Dosage: 5.0MG UNKNOWN
     Route: 048
     Dates: start: 20231219, end: 20240111
  11. ANPEC [Concomitant]
     Dosage: 10.0MG UNKNOWN
     Route: 067
     Dates: start: 20240112
  12. FENTANYL [Concomitant]
     Active Substance: FENTANYL\FENTANYL CITRATE
     Dosage: 1.0MG UNKNOWN
     Route: 062
     Dates: start: 20240111
  13. LOXOPROFEN [Concomitant]
     Active Substance: LOXOPROFEN
     Dosage: 100.0MG UNKNOWN
     Route: 062
     Dates: start: 20231230
  14. OMEPRAZOLE [Concomitant]
     Active Substance: DONEPEZIL HYDROCHLORIDE\OMEPRAZOLE\OMEPRAZOLE MAGNESIUM
     Dates: start: 20240109, end: 20240112
  15. FUROSEMIDE [Concomitant]
     Active Substance: FUROSEMIDE
     Dosage: 20.0MG UNKNOWN
     Dates: start: 20240111
  16. HYDROXYZINE HYDROCHLORIDE [Concomitant]
     Active Substance: HYDROXYZINE HYDROCHLORIDE
  17. PENTAZOCINE [Concomitant]
     Active Substance: PENTAZOCINE
  18. DORMICUM [Concomitant]
     Dosage: 10.0MG UNKNOWN
  19. ACETAMINOPHEN [Concomitant]
     Active Substance: ACETAMINOPHEN
  20. HEPARIN SODIUM [Concomitant]
     Active Substance: HEPARIN SODIUM

REACTIONS (3)
  - Neuroendocrine tumour [Fatal]
  - Vomiting [Unknown]
  - Off label use [Unknown]
